FAERS Safety Report 7738180-2 (Version None)
Quarter: 2011Q3

REPORT INFORMATION
  Report Type: 
  Country: None (occurrence: None)
  Receive Date: 20110908
  Receipt Date: 20110830
  Transmission Date: 20111222
  Serious: Yes (Hospitalization, Other)
  Sender: FDA-Public Use
  Company Number: US-ASTRAZENECA-2011SE32031

PATIENT
  Age: 74 Year
  Sex: Female
  Weight: 77.1 kg

DRUGS (5)
  1. NEXIUM [Suspect]
     Indication: GASTROOESOPHAGEAL REFLUX DISEASE
     Route: 048
     Dates: start: 20050101
  2. JANUVIA [Concomitant]
  3. NEXIUM [Suspect]
     Route: 048
  4. XANAX [Concomitant]
  5. PRILOSEC [Suspect]
     Route: 048

REACTIONS (10)
  - DIABETES MELLITUS [None]
  - VERTIGO [None]
  - ROAD TRAFFIC ACCIDENT [None]
  - MUSCULOSKELETAL DISCOMFORT [None]
  - ROTATOR CUFF SYNDROME [None]
  - LIMB DISCOMFORT [None]
  - CERVICAL VERTEBRAL FRACTURE [None]
  - ADVERSE DRUG REACTION [None]
  - WEIGHT DECREASED [None]
  - TREATMENT NONCOMPLIANCE [None]
